FAERS Safety Report 13575271 (Version 4)
Quarter: 2018Q1

REPORT INFORMATION
  Report Type: Report from Study
  Country: ES (occurrence: ES)
  Receive Date: 20170524
  Receipt Date: 20180329
  Transmission Date: 20180508
  Serious: Yes (Death, Other)
  Sender: FDA-Public Use
  Company Number: ES-AMGEN-ESPNI2017074590

PATIENT
  Age: 42 Year
  Sex: Female

DRUGS (2)
  1. BLINATUMOMAB [Suspect]
     Active Substance: BLINATUMOMAB
     Indication: ACUTE LYMPHOCYTIC LEUKAEMIA RECURRENT
     Dosage: 9 MUG, UNK
     Route: 065
     Dates: start: 20170421, end: 20170519
  2. BLINATUMOMAB [Suspect]
     Active Substance: BLINATUMOMAB
     Dosage: UNK
     Route: 065
     Dates: start: 20170606, end: 20170704

REACTIONS (9)
  - Musculoskeletal pain [Unknown]
  - Thrombocytopenia [Unknown]
  - Hepatotoxicity [Recovered/Resolved]
  - Febrile neutropenia [Unknown]
  - Acute lymphocytic leukaemia recurrent [Unknown]
  - Ascites [Recovered/Resolved]
  - Anaemia [Unknown]
  - Oedema peripheral [Recovered/Resolved]
  - Sepsis [Fatal]

NARRATIVE: CASE EVENT DATE: 2017
